FAERS Safety Report 14224903 (Version 1)
Quarter: 2017Q4

REPORT INFORMATION
  Report Type: Spontaneous
  Country: US (occurrence: US)
  Receive Date: 20171127
  Receipt Date: 20171127
  Transmission Date: 20180321
  Serious: Yes (Other)
  Sender: FDA-Public Use
  Company Number: US-TEVA-764332USA

PATIENT
  Sex: Male

DRUGS (5)
  1. MEGESTROL [Suspect]
     Active Substance: MEGESTROL
     Route: 065
  2. XGEVA [Concomitant]
     Active Substance: DENOSUMAB
  3. XTANDI [Suspect]
     Active Substance: ENZALUTAMIDE
     Indication: PROSTATE CANCER
     Route: 048
     Dates: start: 20160713
  4. LUPRON [Suspect]
     Active Substance: LEUPROLIDE ACETATE
     Route: 065
  5. LISINOPRIL. [Concomitant]
     Active Substance: LISINOPRIL

REACTIONS (7)
  - Skin odour abnormal [Unknown]
  - Somnolence [Unknown]
  - Lethargy [Unknown]
  - Blood pressure increased [Unknown]
  - Hyperchlorhydria [Unknown]
  - Gingival pain [Unknown]
  - Sensitivity of teeth [Unknown]
